FAERS Safety Report 6367513-7 (Version None)
Quarter: 2009Q3

REPORT INFORMATION
  Report Type: 
  Country: None (occurrence: None)
  Receive Date: 20090921
  Receipt Date: 20090915
  Transmission Date: 20100115
  Serious: Yes (Other)
  Sender: FDA-Public Use
  Company Number: US-SANOFI-SYNTHELABO-A03200904109

PATIENT
  Age: 72 Year
  Sex: Male

DRUGS (3)
  1. COUMADIN [Suspect]
     Indication: DRUG USE FOR UNKNOWN INDICATION
     Route: 048
     Dates: start: 20090501, end: 20090901
  2. COUMADIN [Suspect]
     Dosage: UNK
     Route: 065
  3. MULTAQ [Suspect]
     Indication: ATRIAL FIBRILLATION
     Route: 048
     Dates: start: 20090829

REACTIONS (1)
  - INTERNATIONAL NORMALISED RATIO INCREASED [None]
